FAERS Safety Report 14848960 (Version 1)
Quarter: 2018Q2

REPORT INFORMATION
  Report Type: Spontaneous
  Country: FR (occurrence: FR)
  Receive Date: 20180504
  Receipt Date: 20180504
  Transmission Date: 20180711
  Serious: Yes (Hospitalization, Other)
  Sender: FDA-Public Use
  Company Number: FR-TERSERA THERAPEUTICS, LLC-2047224

PATIENT
  Age: 80 Year
  Sex: Male

DRUGS (2)
  1. ANDROCUR [Suspect]
     Active Substance: CYPROTERONE ACETATE
  2. ZOLADEX [Suspect]
     Active Substance: GOSERELIN ACETATE
     Indication: PROSTATE CANCER
     Route: 058

REACTIONS (5)
  - Joint swelling [Unknown]
  - Pulmonary oedema [Unknown]
  - Cardiomyopathy [Unknown]
  - Limb discomfort [Unknown]
  - Ejection fraction decreased [Unknown]
